FAERS Safety Report 20101101 (Version 1)
Quarter: 2021Q4

REPORT INFORMATION
  Report Type: Spontaneous
  Country: CN (occurrence: CN)
  Receive Date: 20211123
  Receipt Date: 20211123
  Transmission Date: 20220303
  Serious: Yes (Other)
  Sender: FDA-Public Use
  Company Number: CN-BAXTER-2021BAX036420

PATIENT
  Age: 29 Year
  Sex: Female
  Weight: 48.5 kg

DRUGS (12)
  1. CYCLOPHOSPHAMIDE [Suspect]
     Active Substance: CYCLOPHOSPHAMIDE
     Indication: Breast cancer female
     Dosage: 1ST CHEMOTHERAPY
     Route: 042
  2. CYCLOPHOSPHAMIDE [Suspect]
     Active Substance: CYCLOPHOSPHAMIDE
     Dosage: SECOND CHEMOTHERAPY, CYCLOPHOSPHAMIDE (ENDOXAN CTX) 800 MG + NS 40 ML
     Route: 042
     Dates: start: 20211009, end: 20211009
  3. CYCLOPHOSPHAMIDE [Suspect]
     Active Substance: CYCLOPHOSPHAMIDE
     Dosage: DOSE RE-INTRODUCED
     Route: 042
  4. SODIUM CHLORIDE [Suspect]
     Active Substance: SODIUM CHLORIDE
     Indication: Medication dilution
     Dosage: 1ST CHEMOTHERAPY, CYCLOPHOSPHAMIDE + NS
     Route: 042
  5. SODIUM CHLORIDE [Suspect]
     Active Substance: SODIUM CHLORIDE
     Dosage: SECOND CHEMOTHERAPY, CYCLOPHOSPHAMIDE (ENDOXAN CTX) 800 MG + NS 40 ML
     Route: 042
     Dates: start: 20211009, end: 20211009
  6. SODIUM CHLORIDE [Suspect]
     Active Substance: SODIUM CHLORIDE
     Dosage: FIRST CHEMOTHERAPY, DOCETAXEL INJECTION + NS
     Route: 041
  7. SODIUM CHLORIDE [Suspect]
     Active Substance: SODIUM CHLORIDE
     Dosage: SECOND CHEMOTHERAPY, DOCETAXEL INJECTION (TAXOTERE) 105 MG + NS 250ML
     Route: 041
     Dates: start: 20211009, end: 20211009
  8. SODIUM CHLORIDE [Suspect]
     Active Substance: SODIUM CHLORIDE
     Dosage: DOSE RE-INTRODUCED, DOCETAXEL INJECTION + NS
     Route: 041
  9. SODIUM CHLORIDE [Suspect]
     Active Substance: SODIUM CHLORIDE
     Dosage: DOSE RE-INTRODUCED, CYCLOPHOSPHAMIDE + NS
     Route: 042
  10. TAXOTERE [Suspect]
     Active Substance: DOCETAXEL
     Indication: Breast cancer female
     Dosage: 1ST CHEMOTHERAPY
     Route: 041
  11. TAXOTERE [Suspect]
     Active Substance: DOCETAXEL
     Dosage: SECOND CHEMOTHERAPY, DOCETAXEL INJECTION (TAXOTERE) 105 MG + NS 250ML
     Route: 041
     Dates: start: 20211009, end: 20211009
  12. TAXOTERE [Suspect]
     Active Substance: DOCETAXEL
     Dosage: DOSE RE-INTRODUCED
     Route: 041

REACTIONS (2)
  - White blood cell count decreased [Recovered/Resolved]
  - Agranulocytosis [Recovered/Resolved]

NARRATIVE: CASE EVENT DATE: 20211015
